FAERS Safety Report 21002773 (Version 1)
Quarter: 2022Q2

REPORT INFORMATION
  Report Type: Spontaneous
  Country: US (occurrence: None)
  Receive Date: 20220623
  Receipt Date: 20220623
  Transmission Date: 20220721
  Serious: Yes (Death)
  Sender: FDA-Public Use
  Company Number: None

PATIENT
  Age: 42 Year
  Sex: Female
  Weight: 117.93 kg

DRUGS (30)
  1. NIVESTYM [Suspect]
     Active Substance: FILGRASTIM-AAFI
     Indication: Breast cancer
     Dosage: OTHER QUANTITY : 480 MCG;?OTHER FREQUENCY : DAYS 1-5;?
     Route: 058
     Dates: start: 202202
  2. Azo Tabs [Concomitant]
  3. CALCIUM CARBONATE [Concomitant]
     Active Substance: CALCIUM CARBONATE
  4. CARBOPLATIN [Concomitant]
     Active Substance: CARBOPLATIN
  5. Claritin [Concomitant]
  6. CYCLOPHOSPHAMIDE [Concomitant]
     Active Substance: CYCLOPHOSPHAMIDE
  7. DEXAMETHASONE [Concomitant]
     Active Substance: DEXAMETHASONE
  8. EMEND [Concomitant]
     Active Substance: APREPITANT
  9. FAMOTIDINE [Concomitant]
     Active Substance: FAMOTIDINE
  10. Gemcitabine HCI [Concomitant]
  11. ACETAMINOPHEN\HYDROCODONE [Concomitant]
     Active Substance: ACETAMINOPHEN\HYDROCODONE
  12. KEYTRUDA [Concomitant]
  13. KLOR-CON [Concomitant]
  14. LEVAQUIN [Concomitant]
     Active Substance: LEVOFLOXACIN
  15. Lidocaine-Prilocaine [Concomitant]
  16. LORezepam [Concomitant]
  17. Lupron Depot (3-Month) [Concomitant]
  18. MAGNESIUM OXIDE [Concomitant]
     Active Substance: MAGNESIUM OXIDE
  19. METOPROLOL TARTRATE [Concomitant]
     Active Substance: METOPROLOL TARTRATE
  20. VITAMINS [Concomitant]
     Active Substance: VITAMINS
  21. OMEPRAZOLE [Concomitant]
     Active Substance: OMEPRAZOLE
  22. Palonosetron HCI [Concomitant]
  23. POTASSIUM CHLORIDE [Concomitant]
     Active Substance: POTASSIUM CHLORIDE
  24. PYRIDOXINE HCI [Concomitant]
     Active Substance: PYRIDOXINE HYDROCHLORIDE
  25. Retacrit Silver sulfADIAZINE [Concomitant]
  26. CHOLECALCIFEROL [Concomitant]
     Active Substance: CHOLECALCIFEROL
  27. WARFARIN [Concomitant]
  28. SODIUM [Concomitant]
     Active Substance: SODIUM
  29. XGEVA [Concomitant]
     Active Substance: DENOSUMAB
  30. ZOFRAN [Concomitant]
     Active Substance: ONDANSETRON HYDROCHLORIDE

REACTIONS (1)
  - Neoplasm malignant [None]
